FAERS Safety Report 9748919 (Version 2)
Quarter: 2013Q4

REPORT INFORMATION
  Report Type: Spontaneous
  Country: US (occurrence: US)
  Receive Date: 20131212
  Receipt Date: 20131212
  Transmission Date: 20140711
  Serious: No
  Sender: FDA-Public Use
  Company Number: US-INCYTE CORPORATION-2013IN000973

PATIENT
  Age: 83 Year
  Sex: Female

DRUGS (10)
  1. JAKAFI [Suspect]
     Indication: MYELOFIBROSIS
     Dosage: 10 MG, BID
     Route: 048
     Dates: start: 20130427, end: 20130908
  2. CLONIDINE [Concomitant]
  3. HYDROCHLOROTHIAZIDE [Concomitant]
  4. IRBESARTAN [Concomitant]
  5. AMLODIPINE [Concomitant]
  6. CARVEDILOL [Concomitant]
  7. GLYBURIDE [Concomitant]
  8. PRAVASTATIN [Concomitant]
  9. NOVOLOG [Concomitant]
  10. LANTUS [Concomitant]

REACTIONS (3)
  - Local swelling [Not Recovered/Not Resolved]
  - Hyperhidrosis [Not Recovered/Not Resolved]
  - Blood glucose decreased [Not Recovered/Not Resolved]
